FAERS Safety Report 4346944-0 (Version None)
Quarter: 2004Q1

REPORT INFORMATION
  Report Type: 
  Country: None (occurrence: None)
  Receive Date: 20040329
  Receipt Date: 20031216
  Transmission Date: 20041129
  Serious: No
  Sender: FDA-Public Use
  Company Number: USA031254835

PATIENT
  Age: 6 Year
  Sex: Male
  Weight: 25 kg

DRUGS (2)
  1. STRATTERA [Suspect]
     Indication: ATTENTION DEFICIT/HYPERACTIVITY DISORDER
     Dosage: 25 MG/DAY
     Dates: start: 20030901
  2. STRATTERA [Suspect]
     Indication: BIPOLAR DISORDER
     Dosage: 25 MG/DAY
     Dates: start: 20030901

REACTIONS (6)
  - DRUG EFFECT DECREASED [None]
  - DYSPEPSIA [None]
  - EYE SWELLING [None]
  - LACTOSE INTOLERANCE [None]
  - MULTIPLE ALLERGIES [None]
  - PRURITUS [None]
